FAERS Safety Report 11186618 (Version 1)
Quarter: 2015Q2

REPORT INFORMATION
  Report Type: Spontaneous
  Country: DE (occurrence: DE)
  Receive Date: 20150613
  Receipt Date: 20150613
  Transmission Date: 20150821
  Serious: Yes (Other)
  Sender: FDA-Public Use
  Company Number: DE-DRREDDYS-GER/GER/15/0048548

PATIENT
  Age: 59 Year
  Sex: Female
  Weight: 70 kg

DRUGS (1)
  1. LETROZOL BETA 2,5 MG FILMTABLETTEN [Suspect]
     Active Substance: LETROZOLE
     Indication: BREAST CANCER METASTATIC
     Route: 048
     Dates: start: 20150529

REACTIONS (6)
  - Pain in extremity [Unknown]
  - Movement disorder [Unknown]
  - Renal pain [Unknown]
  - Posture abnormal [None]
  - Pain in extremity [None]
  - Paralysis [Unknown]

NARRATIVE: CASE EVENT DATE: 20150531
